FAERS Safety Report 10668675 (Version 1)
Quarter: 2014Q4

REPORT INFORMATION
  Report Type: Spontaneous
  Country: CA (occurrence: CA)
  Receive Date: 20141222
  Receipt Date: 20141222
  Transmission Date: 20150529
  Serious: Yes (Death)
  Sender: FDA-Public Use
  Company Number: CA-PFIZER INC-2014348873

PATIENT
  Age: 20 Year
  Sex: Female
  Weight: 71 kg

DRUGS (3)
  1. DOXEPIN [Suspect]
     Active Substance: DOXEPIN
     Dosage: UNK
  2. ALPRAZOLAM. [Suspect]
     Active Substance: ALPRAZOLAM
     Dosage: UNK
  3. PROPANOLOL HCL [Suspect]
     Active Substance: PROPRANOLOL HYDROCHLORIDE
     Dosage: UNK

REACTIONS (4)
  - Cardioactive drug level increased [Fatal]
  - Antidepressant drug level increased [Fatal]
  - Substance use [Fatal]
  - Blood ethanol increased [Fatal]
